FAERS Safety Report 22021095 (Version 1)
Quarter: 2023Q1

REPORT INFORMATION
  Report Type: Spontaneous
  Country: US (occurrence: None)
  Receive Date: 20230217
  Receipt Date: 20230217
  Transmission Date: 20230418
  Serious: Yes (Other)
  Sender: FDA-Public Use
  Company Number: None

PATIENT
  Age: 35 Year
  Sex: Female
  Weight: 99.8 kg

DRUGS (1)
  1. INFLIXIMAB [Suspect]
     Active Substance: INFLIXIMAB

REACTIONS (8)
  - Dyspnoea [None]
  - Chest discomfort [None]
  - Nausea [None]
  - Dizziness [None]
  - Infusion related reaction [None]
  - Abdominal pain [None]
  - Blood potassium increased [None]
  - Blood sodium decreased [None]

NARRATIVE: CASE EVENT DATE: 20230216
